FAERS Safety Report 4475101-2 (Version None)
Quarter: 2004Q3

REPORT INFORMATION
  Report Type: 
  Country: None (occurrence: None)
  Receive Date: 20040923
  Receipt Date: 20040810
  Transmission Date: 20050211
  Serious: No
  Sender: FDA-Public Use
  Company Number: USA040875062

PATIENT
  Age: 81 Year
  Sex: Female
  Weight: 52 kg

DRUGS (6)
  1. FORTEO [Suspect]
     Indication: OSTEOPOROSIS
     Dates: start: 20040505
  2. EVISTA [Suspect]
     Indication: OSTEOPOROSIS
     Dosage: 60 MG/1 DAY
  3. KATOPRIL (CAPTOPRIL BIOCHEMIE) [Concomitant]
  4. MULTIVITAMIN [Concomitant]
  5. CALTRATE +D [Concomitant]
  6. FOSAMAX [Concomitant]

REACTIONS (9)
  - ALOPECIA [None]
  - BODY HEIGHT DECREASED [None]
  - FATIGUE [None]
  - FEELING ABNORMAL [None]
  - FREQUENT BOWEL MOVEMENTS [None]
  - INFLUENZA LIKE ILLNESS [None]
  - PAIN [None]
  - PYREXIA [None]
  - VIRAL INFECTION [None]
